FAERS Safety Report 5898215-9 (Version None)
Quarter: 2008Q3

REPORT INFORMATION
  Report Type: 
  Country: None (occurrence: None)
  Receive Date: 20080919
  Receipt Date: 20080627
  Transmission Date: 20090109
  Serious: Yes (Other)
  Sender: FDA-Public Use
  Company Number: 14116396

PATIENT
  Sex: Female

DRUGS (6)
  1. EMSAM [Suspect]
     Indication: MAJOR DEPRESSION
     Dosage: 6 MILLIGRAM, 24 HOUR TD
     Route: 062
     Dates: start: 20070201
  2. CLONAZEPAM [Concomitant]
  3. CORTISONE [Concomitant]
  4. VICODIN [Concomitant]
  5. PREMARIN [Concomitant]
  6. MOTRIN [Concomitant]

REACTIONS (1)
  - APPLICATION SITE REACTION [None]
